FAERS Safety Report 17851994 (Version 2)
Quarter: 2020Q3

REPORT INFORMATION
  Report Type: Spontaneous
  Country: US (occurrence: US)
  Receive Date: 20200602
  Receipt Date: 20200731
  Transmission Date: 20201103
  Serious: No
  Sender: FDA-Public Use
  Company Number: US-009507513-2006USA000137

PATIENT
  Sex: Female

DRUGS (4)
  1. LENVATINIB MESYLATE [Suspect]
     Active Substance: LENVATINIB MESYLATE
     Dosage: 10 MILLIGRAM, QOD
     Route: 048
     Dates: start: 202005, end: 20200629
  2. LENVATINIB MESYLATE [Suspect]
     Active Substance: LENVATINIB MESYLATE
     Dosage: 10 MILLIGRAM, EVERY OTHER DAY X 1 WEEK
     Route: 048
     Dates: start: 20200519, end: 20200526
  3. LENVATINIB MESYLATE [Suspect]
     Active Substance: LENVATINIB MESYLATE
     Indication: ENDOMETRIAL CANCER
     Dosage: 14 MILLIGRAM DAILY
     Route: 048
     Dates: start: 20200326, end: 20200518
  4. KEYTRUDA [Suspect]
     Active Substance: PEMBROLIZUMAB
     Indication: ENDOMETRIAL CANCER
     Dosage: UNK, Q3W
     Route: 042
     Dates: end: 2020

REACTIONS (20)
  - Palpitations [Recovering/Resolving]
  - Oral discomfort [Recovered/Resolved]
  - Weight decreased [Recovering/Resolving]
  - Nausea [Not Recovered/Not Resolved]
  - Dehydration [Unknown]
  - Dyspnoea [Recovered/Resolved]
  - Thyroid function test abnormal [Not Recovered/Not Resolved]
  - Decreased appetite [Not Recovered/Not Resolved]
  - Fatigue [Not Recovered/Not Resolved]
  - Dysphagia [Recovered/Resolved]
  - Glossodynia [Recovering/Resolving]
  - Hypotension [Unknown]
  - Feeding disorder [Recovered/Resolved]
  - Headache [Recovering/Resolving]
  - Throat irritation [Recovered/Resolved]
  - Liver disorder [Unknown]
  - Hypertension [Recovering/Resolving]
  - Diarrhoea [Not Recovered/Not Resolved]
  - Urinary tract infection [Recovered/Resolved]
  - Rash macular [Recovering/Resolving]

NARRATIVE: CASE EVENT DATE: 2020
